FAERS Safety Report 4698061-8 (Version None)
Quarter: 2005Q2

REPORT INFORMATION
  Report Type: 
  Country: None (occurrence: None)
  Receive Date: 20050621
  Receipt Date: 20050614
  Transmission Date: 20051028
  Serious: Yes (Hospitalization)
  Sender: FDA-Public Use
  Company Number: 11468

PATIENT
  Sex: Female

DRUGS (1)
  1. PACLITAXEL [Suspect]
     Indication: BREAST CANCER

REACTIONS (4)
  - NEUTROPENIA [None]
  - PNEUMONITIS [None]
  - STOMATITIS [None]
  - TYPE IV HYPERSENSITIVITY REACTION [None]
